FAERS Safety Report 13595724 (Version 1)
Quarter: 2017Q2

REPORT INFORMATION
  Report Type: Spontaneous
  Country: US (occurrence: US)
  Receive Date: 20170531
  Receipt Date: 20170531
  Transmission Date: 20170830
  Serious: No
  Sender: FDA-Public Use
  Company Number: US-JNJFOC-20170403401

PATIENT
  Sex: Female
  Weight: 64.86 kg

DRUGS (2)
  1. TYLENOL EXTRA STRENGTH [Suspect]
     Active Substance: ACETAMINOPHEN
     Indication: ARTHRALGIA
     Route: 048
     Dates: end: 20170402
  2. LEVOXYL [Concomitant]
     Active Substance: LEVOTHYROXINE SODIUM
     Indication: THYROID DISORDER
     Dosage: 75 MCG
     Route: 065

REACTIONS (6)
  - Constipation [Recovered/Resolved]
  - Product label issue [Unknown]
  - Abdominal discomfort [Recovered/Resolved]
  - Drug administration error [Recovered/Resolved]
  - Product selection error [Recovered/Resolved]
  - Reaction to drug excipients [Recovered/Resolved]
